FAERS Safety Report 6434722-8 (Version None)
Quarter: 2009Q4

REPORT INFORMATION
  Report Type: 
  Country: None (occurrence: None)
  Receive Date: 20091109
  Receipt Date: 20091109
  Transmission Date: 20100525
  Serious: Yes (Other)
  Sender: FDA-Public Use
  Company Number: None

PATIENT
  Age: 49 Year
  Sex: Female
  Weight: 65.7716 kg

DRUGS (1)
  1. AMBIEN CR [Suspect]
     Indication: INSOMNIA
     Dates: start: 20090930, end: 20091104

REACTIONS (6)
  - AMNESIA [None]
  - CONCUSSION [None]
  - FALL [None]
  - HEAD INJURY [None]
  - HEADACHE [None]
  - SOMNAMBULISM [None]
